FAERS Safety Report 12699408 (Version 2)
Quarter: 2016Q3

REPORT INFORMATION
  Report Type: Report from Study
  Country: AT (occurrence: AT)
  Receive Date: 20160830
  Receipt Date: 20160831
  Transmission Date: 20161109
  Serious: Yes (Hospitalization)
  Sender: FDA-Public Use
  Company Number: AT-ABBVIE-16P-009-1604546-00

PATIENT
  Age: 65 Year
  Sex: Male

DRUGS (2)
  1. DUODOPA [Suspect]
     Active Substance: CARBIDOPA\LEVODOPA
     Indication: PARKINSON^S DISEASE
     Dosage: 24 H THERAPY: MD 3 ML; ED 1.5 ML; CR1 6:00-20:00  4.2ML/H; CR2 20:00-06:00 3.6 ML/H
     Route: 050
     Dates: start: 20160405, end: 20160412
  2. DUODOPA [Suspect]
     Active Substance: CARBIDOPA\LEVODOPA
     Route: 050
     Dates: start: 20160412

REACTIONS (7)
  - General physical health deterioration [Not Recovered/Not Resolved]
  - Dehydration [Unknown]
  - Infection [Unknown]
  - Diarrhoea [Not Recovered/Not Resolved]
  - Device dislocation [Unknown]
  - Device use error [Unknown]
  - Incorrect route of drug administration [Unknown]

NARRATIVE: CASE EVENT DATE: 20160412
